FAERS Safety Report 10879038 (Version 1)
Quarter: 2015Q1

REPORT INFORMATION
  Report Type: Spontaneous
  Country: IE (occurrence: IE)
  Receive Date: 20150302
  Receipt Date: 20150302
  Transmission Date: 20150721
  Serious: Yes (Other)
  Sender: FDA-Public Use
  Company Number: IE-ACTAVIS-2015-03842

PATIENT
  Age: 17 Year
  Sex: Male
  Weight: 78 kg

DRUGS (5)
  1. CO-AMOXICLAV                       /00756801/ [Concomitant]
     Active Substance: AMOXICILLIN\CLAVULANIC ACID
     Indication: POST PROCEDURAL HAEMORRHAGE
     Dosage: 1.2 G, TID
     Route: 042
     Dates: start: 20141026, end: 20141028
  2. TRAMADOL [Suspect]
     Active Substance: TRAMADOL
     Indication: POSTOPERATIVE ANALGESIA
     Dosage: 100 MG, SINGLE DOSE
     Route: 048
     Dates: start: 20141026, end: 20141026
  3. KERAL [Concomitant]
     Indication: POSTOPERATIVE ANALGESIA
     Dosage: 25 MG, TID
     Route: 048
     Dates: start: 20141023, end: 20141030
  4. DEXAMETHASONE. [Concomitant]
     Active Substance: DEXAMETHASONE
     Indication: POSTOPERATIVE ANALGESIA
     Dosage: 8 MG, SINGLE DOSE
     Route: 042
     Dates: start: 20141026, end: 20141026
  5. ACETAMINOPHEN AND CODEINE [Concomitant]
     Active Substance: ACETAMINOPHEN\CODEINE PHOSPHATE
     Indication: POSTOPERATIVE ANALGESIA
     Dosage: 2 DF, QID
     Route: 048
     Dates: start: 20141023, end: 20141026

REACTIONS (1)
  - Dyskinesia [Recovered/Resolved]

NARRATIVE: CASE EVENT DATE: 20141026
